FAERS Safety Report 23059625 (Version 1)
Quarter: 2023Q4

REPORT INFORMATION
  Report Type: Spontaneous
  Country: US (occurrence: US)
  Receive Date: 20231012
  Receipt Date: 20231012
  Transmission Date: 20240110
  Serious: Yes (Life-Threatening, Hospitalization)
  Sender: FDA-Public Use
  Company Number: US-TEVA-2023-US-2933123

PATIENT
  Age: 58 Year
  Sex: Female

DRUGS (1)
  1. VENLAFAXINE [Suspect]
     Active Substance: VENLAFAXINE HYDROCHLORIDE
     Indication: Suicide attempt
     Dosage: INGESTED 196 CAPSULES OF VENLAFAXINE 150MG EXTENDED-RELEASE CAPSULES , 196 DOSAGE FORMS
     Route: 048

REACTIONS (5)
  - Cardiogenic shock [Recovering/Resolving]
  - Generalised tonic-clonic seizure [Recovering/Resolving]
  - Acute kidney injury [Unknown]
  - Ischaemic hepatitis [Unknown]
  - Intentional overdose [Unknown]
